FAERS Safety Report 19032528 (Version 1)
Quarter: 2021Q1

REPORT INFORMATION
  Report Type: Report from Study
  Country: US (occurrence: US)
  Receive Date: 20210319
  Receipt Date: 20210319
  Transmission Date: 20210420
  Serious: Yes (Hospitalization, Other)
  Sender: FDA-Public Use
  Company Number: US-JNJFOC-20210107511

PATIENT
  Age: 81 Year
  Sex: Female

DRUGS (2)
  1. MACITENTAN [Suspect]
     Active Substance: MACITENTAN
     Indication: CARDIAC VALVE DISEASE
     Route: 048
     Dates: start: 2019
  2. UPTRAVI [Suspect]
     Active Substance: SELEXIPAG
     Indication: PULMONARY ARTERIAL HYPERTENSION
     Route: 048

REACTIONS (8)
  - Red blood cell count decreased [Unknown]
  - Fall [Unknown]
  - Anaemia [Not Recovered/Not Resolved]
  - Blood count abnormal [Unknown]
  - Product use in unapproved indication [Unknown]
  - Contusion [Unknown]
  - Diarrhoea [Unknown]
  - Hip fracture [Unknown]

NARRATIVE: CASE EVENT DATE: 20200723
